FAERS Safety Report 8196655-9 (Version None)
Quarter: 2012Q1

REPORT INFORMATION
  Report Type: 
  Country: None (occurrence: None)
  Receive Date: 20120309
  Receipt Date: 20120229
  Transmission Date: 20120608
  Serious: Yes (Hospitalization)
  Sender: FDA-Public Use
  Company Number: US-SANOFI-AVENTIS-2012SA013977

PATIENT
  Age: 68 Year
  Sex: Female

DRUGS (4)
  1. MULTAQ [Suspect]
     Indication: ATRIAL FIBRILLATION
     Route: 048
  2. DABIGATRAN [Suspect]
     Route: 048
  3. LISINOPRIL [Concomitant]
     Route: 048
  4. GLIPIZIDE [Concomitant]
     Route: 048

REACTIONS (4)
  - HEADACHE [None]
  - HAEMORRHAGE INTRACRANIAL [None]
  - LOSS OF CONSCIOUSNESS [None]
  - CREATININE RENAL CLEARANCE DECREASED [None]
